FAERS Safety Report 8326206-7 (Version None)
Quarter: 2012Q2

REPORT INFORMATION
  Report Type: 
  Country: None (occurrence: None)
  Receive Date: 20120501
  Receipt Date: 20100618
  Transmission Date: 20120825
  Serious: No
  Sender: FDA-Public Use
  Company Number: US-TEVA-2010003395

PATIENT
  Sex: Female
  Weight: 64.468 kg

DRUGS (9)
  1. KLONOPIN [Concomitant]
     Indication: ANXIETY
     Dates: start: 20100201
  2. NUVIGIL [Suspect]
     Indication: FATIGUE
     Dosage: 250 MILLIGRAM;
     Route: 048
     Dates: start: 20100611
  3. AMBIEN [Concomitant]
     Indication: SLEEP DISORDER
     Dates: start: 20070101
  4. NUVIGIL [Suspect]
     Indication: FIBROMYALGIA
  5. SAVELLA [Concomitant]
     Indication: FIBROMYALGIA
     Dates: start: 20100501
  6. PAXIL [Concomitant]
     Indication: DEPRESSION
     Dates: start: 20100501
  7. XANAX [Concomitant]
     Indication: PANIC ATTACK
  8. XALATAN [Concomitant]
     Indication: GLAUCOMA
     Dates: start: 20050101
  9. FLEXERIL [Concomitant]
     Indication: MUSCLE SPASMS

REACTIONS (1)
  - DRUG INEFFECTIVE FOR UNAPPROVED INDICATION [None]
